FAERS Safety Report 9371643 (Version 1)
Quarter: 2013Q2

REPORT INFORMATION
  Report Type: Spontaneous
  Country: US (occurrence: None)
  Receive Date: 20130626
  Receipt Date: 20130626
  Transmission Date: 20140414
  Serious: No
  Sender: FDA-Public Use
  Company Number: None

PATIENT
  Age: 50 Year
  Sex: Female

DRUGS (1)
  1. XELJANZ [Suspect]
     Indication: RHEUMATOID ARTHRITIS
     Dosage: 5MG  BID  PO
     Route: 048
     Dates: start: 20130129, end: 20130624

REACTIONS (5)
  - Herpes zoster [None]
  - Flatulence [None]
  - Abdominal distension [None]
  - Abdominal discomfort [None]
  - Drug ineffective [None]
